FAERS Safety Report 7796494-4 (Version None)
Quarter: 2011Q4

REPORT INFORMATION
  Report Type: 
  Country: None (occurrence: None)
  Receive Date: 20111005
  Receipt Date: 20110928
  Transmission Date: 20120403
  Serious: Yes (Hospitalization, Other)
  Sender: FDA-Public Use
  Company Number: US-AMGEN-USASP2011050192

PATIENT
  Age: 84 Year
  Sex: Female

DRUGS (5)
  1. GLYBURIDE [Concomitant]
  2. PROLIA [Suspect]
     Indication: OSTEOPOROSIS POSTMENOPAUSAL
     Dosage: 60 MG, Q6MO
     Dates: start: 20110912
  3. NEURONTIN [Concomitant]
  4. NORVASC [Concomitant]
  5. PRAVACHOL [Concomitant]

REACTIONS (2)
  - PAIN [None]
  - HERPES ZOSTER [None]
